FAERS Safety Report 10076686 (Version 1)
Quarter: 2014Q2

REPORT INFORMATION
  Report Type: Spontaneous
  Country: US (occurrence: None)
  Receive Date: 20140411
  Receipt Date: 20140411
  Transmission Date: 20141212
  Serious: Yes (Disabling)
  Sender: FDA-Public Use
  Company Number: None

PATIENT
  Age: 33 Year
  Sex: Female
  Weight: 74.84 kg

DRUGS (1)
  1. LUPRON [Suspect]
     Indication: PELVIC PAIN
     Dosage: 1 (BY DR PER MONTH) 12 MONTHS?ONCE A MONTH?INTO THE MUSCLE
     Dates: start: 20130110, end: 20140120

REACTIONS (5)
  - Pain [None]
  - Muscle spasms [None]
  - Bone pain [None]
  - Memory impairment [None]
  - Drug withdrawal syndrome [None]
